FAERS Safety Report 10448017 (Version 6)
Quarter: 2015Q2

REPORT INFORMATION
  Report Type: Report from Study
  Country: IL (occurrence: IL)
  Receive Date: 20140911
  Receipt Date: 20150624
  Transmission Date: 20150821
  Serious: Yes (Hospitalization)
  Sender: FDA-Public Use
  Company Number: IL-009507513-1401ISR010497

PATIENT
  Age: 72 Year
  Sex: Male
  Weight: 73.5 kg

DRUGS (14)
  1. PEMBROLIZUMAB. [Suspect]
     Active Substance: PEMBROLIZUMAB
     Indication: HEAD AND NECK CANCER
     Dosage: 10 MG/KG, Q2W
     Route: 042
     Dates: start: 20131006, end: 20131006
  2. PEMBROLIZUMAB. [Suspect]
     Active Substance: PEMBROLIZUMAB
     Dosage: 10 MG/KG, Q2W
     Route: 042
     Dates: start: 20131027, end: 20140527
  3. BONDORMIN [Concomitant]
     Indication: INSOMNIA
     Dosage: 0.25 MG, QD
     Route: 048
     Dates: start: 201301, end: 20140428
  4. OPTALGIN [Concomitant]
     Active Substance: METAMIZOLE
     Indication: PAIN
     Dosage: 1000MG, BID
     Route: 048
     Dates: start: 20131002, end: 20131006
  5. LAXIN (BISACODYL) [Concomitant]
     Indication: CONSTIPATION
     Dosage: 1 UNIT, QD
     Route: 048
     Dates: start: 201305, end: 20131203
  6. FENTANYL CITRATE. [Concomitant]
     Active Substance: FENTANYL CITRATE
     Indication: PAIN
     Dosage: 100 MG, BID
     Route: 045
     Dates: start: 20131005, end: 20131017
  7. TEVAPIRIN [Concomitant]
     Indication: MYOCARDIAL ISCHAEMIA
     Dosage: 100 MG, QD
     Route: 048
     Dates: start: 198301
  8. TARGIN [Concomitant]
     Active Substance: NALOXONE HYDROCHLORIDE\OXYCODONE HYDROCHLORIDE
     Indication: PAIN
     Dosage: 20 MG, QID
     Route: 048
     Dates: start: 201305, end: 20131112
  9. CARDILOC [Concomitant]
     Active Substance: BISOPROLOL FUMARATE
     Indication: HYPERTENSION
     Dosage: 2.5 MG, QD
     Route: 048
     Dates: start: 201001, end: 20131004
  10. OXYCOD [Concomitant]
     Indication: PAIN
     Dosage: 10 MG, BID
     Route: 048
     Dates: start: 201305, end: 20131105
  11. AVILAC [Concomitant]
     Indication: CONSTIPATION
     Dosage: 45 ML, QD
     Route: 048
     Dates: start: 201307, end: 20131203
  12. GABAPENTIN. [Concomitant]
     Active Substance: GABAPENTIN
     Indication: PAIN
     Dosage: TOTAL DAILY DOSE: 400 MG, FREQUENCY: OTHER
     Route: 048
     Dates: start: 201305, end: 20131112
  13. FENTANYL. [Concomitant]
     Active Substance: FENTANYL
     Indication: PAIN
     Dosage: TOTAL DAILY DOSE: 75 MICROGRAM, FREQUENCY: OTHER
     Route: 062
     Dates: start: 20131004, end: 20131020
  14. GLUCOMIN [Concomitant]
     Active Substance: METFORMIN HYDROCHLORIDE
     Indication: DIABETES MELLITUS
     Dosage: 850 MG, BID
     Route: 048
     Dates: start: 200301, end: 20131017

REACTIONS (1)
  - Abscess neck [Recovered/Resolved]

NARRATIVE: CASE EVENT DATE: 20131017
